FAERS Safety Report 16944605 (Version 2)
Quarter: 2019Q4

REPORT INFORMATION
  Report Type: Spontaneous
  Country: US (occurrence: US)
  Receive Date: 20191022
  Receipt Date: 20191101
  Transmission Date: 20200122
  Serious: Yes (Life-Threatening, Hospitalization)
  Sender: FDA-Public Use
  Company Number: US-GE HEALTHCARE LIFE SCIENCES-2019CSU005344

PATIENT
  Age: 67 Year
  Sex: Male

DRUGS (4)
  1. GADAVIST [Suspect]
     Active Substance: GADOBUTROL
     Indication: PRODUCT USED FOR UNKNOWN INDICATION
  2. DEXAMETHASONE. [Concomitant]
     Active Substance: DEXAMETHASONE
     Dosage: 10 MG, UNK
  3. GADAVIST [Suspect]
     Active Substance: GADOBUTROL
     Indication: EPIDURAL INJECTION
     Dosage: 2.5 ML, SINGLE
     Route: 037
     Dates: start: 20181231, end: 20181231
  4. GADAVIST [Suspect]
     Active Substance: GADOBUTROL
     Indication: X-RAY

REACTIONS (3)
  - Extravasation [Recovered/Resolved]
  - Off label use [Recovered/Resolved]
  - Generalised tonic-clonic seizure [Recovered/Resolved]
